FAERS Safety Report 5733782-7 (Version None)
Quarter: 2008Q2

REPORT INFORMATION
  Report Type: 
  Country: None (occurrence: None)
  Receive Date: 20080509
  Receipt Date: 20080428
  Transmission Date: 20081010
  Serious: Yes (Other)
  Sender: FDA-Public Use
  Company Number: IE-PFIZER INC-2008019781

PATIENT
  Sex: Female
  Weight: 72 kg

DRUGS (2)
  1. CHANTIX [Suspect]
     Indication: SMOKING CESSATION THERAPY
     Route: 048
     Dates: start: 20080314, end: 20080328
  2. OVRANETTE [Concomitant]
     Route: 048

REACTIONS (3)
  - HALLUCINATION [None]
  - NERVOUSNESS [None]
  - THINKING ABNORMAL [None]
